FAERS Safety Report 6919689-8 (Version None)
Quarter: 2010Q3

REPORT INFORMATION
  Report Type: 
  Country: None (occurrence: None)
  Receive Date: 20100811
  Receipt Date: 20100723
  Transmission Date: 20110219
  Serious: Yes (Other)
  Sender: FDA-Public Use
  Company Number: BR-BRISTOL-MYERS SQUIBB COMPANY-15231590

PATIENT
  Age: 73 Year
  Sex: Male

DRUGS (1)
  1. GLUCOVANCE [Suspect]
     Dosage: START BEFORE 1 YEAR 1DF=5/500MG
     Route: 048

REACTIONS (1)
  - RENAL DISORDER [None]
